FAERS Safety Report 9011847 (Version 1)
Quarter: 2013Q1

REPORT INFORMATION
  Report Type: Spontaneous
  Country: FR (occurrence: FR)
  Receive Date: 20130112
  Receipt Date: 20130112
  Transmission Date: 20140127
  Serious: Yes (Hospitalization)
  Sender: FDA-Public Use
  Company Number: FR-US-EMD SERONO, INC.-7186068

PATIENT
  Age: 36 Year
  Sex: Female

DRUGS (3)
  1. GONAL-F [Suspect]
     Indication: IN VITRO FERTILISATION
     Route: 058
     Dates: start: 20120629, end: 20120708
  2. GONADOTROPHIN, CHORIONIC [Suspect]
     Indication: IN VITRO FERTILISATION
     Route: 030
     Dates: start: 20120709, end: 20120709
  3. ORGALUTRAN [Suspect]
     Indication: IN VITRO FERTILISATION
     Route: 058
     Dates: start: 20120705, end: 20120709

REACTIONS (2)
  - Ovarian hyperstimulation syndrome [Recovered/Resolved]
  - Pleural effusion [Recovered/Resolved]
